FAERS Safety Report 8151747-5 (Version None)
Quarter: 2012Q1

REPORT INFORMATION
  Report Type: 
  Country: None (occurrence: None)
  Receive Date: 20120221
  Receipt Date: 20120208
  Transmission Date: 20120608
  Serious: No
  Sender: FDA-Public Use
  Company Number: US-BIOGENIDEC-2011BI017760

PATIENT
  Age: 44 Year
  Sex: Female

DRUGS (3)
  1. AVONEX [Concomitant]
     Indication: MULTIPLE SCLEROSIS
     Route: 030
  2. OXYBUTYNIN [Concomitant]
     Indication: MICTURITION URGENCY
  3. TYSABRI [Suspect]
     Indication: MULTIPLE SCLEROSIS
     Route: 042
     Dates: start: 20110329

REACTIONS (12)
  - FATIGUE [None]
  - PAIN IN EXTREMITY [None]
  - POOR QUALITY SLEEP [None]
  - DIPLOPIA [None]
  - COORDINATION ABNORMAL [None]
  - WEIGHT INCREASED [None]
  - ABDOMINAL PAIN [None]
  - HEADACHE [None]
  - MALAISE [None]
  - ASTHENIA [None]
  - MUSCULAR WEAKNESS [None]
  - VISION BLURRED [None]
